FAERS Safety Report 6068443-0 (Version None)
Quarter: 2009Q1

REPORT INFORMATION
  Report Type: 
  Country: None (occurrence: None)
  Receive Date: 20090121
  Receipt Date: 20080201
  Transmission Date: 20090719
  Serious: Yes (Other)
  Sender: FDA-Public Use
  Company Number: HQ3963727AUG2002

PATIENT
  Age: 70 Year
  Sex: Female
  Weight: 63.56 kg

DRUGS (8)
  1. PREMPRO [Suspect]
     Indication: HORMONE REPLACEMENT THERAPY
     Dosage: ONE TABLET DAILY, 0.625MG/5.0 MG, ORAL ; 0.625MG/2.5MG, ORAL
     Route: 048
     Dates: start: 19980101, end: 20000101
  2. PREMPRO [Suspect]
     Indication: HORMONE REPLACEMENT THERAPY
     Dosage: ONE TABLET DAILY, 0.625MG/5.0 MG, ORAL ; 0.625MG/2.5MG, ORAL
     Route: 048
     Dates: start: 20000101, end: 20020801
  3. PREMARIN [Suspect]
     Dosage: ORAL
     Route: 048
     Dates: start: 19870101
  4. PROVERA [Suspect]
     Dosage: ADDITIONAL 5MG DAILY, ORAL
     Route: 048
     Dates: start: 20020601
  5. SYNTHROID [Concomitant]
  6. ACCUPRIL [Concomitant]
  7. CELEBREX [Concomitant]
  8. ATENOLOL [Concomitant]

REACTIONS (1)
  - BREAST CANCER [None]
